FAERS Safety Report 9164997 (Version 2)
Quarter: 2013Q2

REPORT INFORMATION
  Report Type: Spontaneous
  Country: US (occurrence: US)
  Receive Date: 20130315
  Receipt Date: 20130401
  Transmission Date: 20140414
  Serious: Yes (Hospitalization)
  Sender: FDA-Public Use
  Company Number: US-JNJFOC-20130302335

PATIENT
  Sex: Male
  Weight: 126.55 kg

DRUGS (5)
  1. HALDOL DECANOATE [Suspect]
     Indication: SCHIZOPHRENIA
     Route: 030
  2. INVEGA SUSTENNA [Suspect]
     Indication: SCHIZOPHRENIA
     Route: 030
     Dates: start: 2011, end: 2011
  3. INVEGA SUSTENNA [Suspect]
     Indication: SCHIZOPHRENIA
     Route: 030
     Dates: start: 2011, end: 2011
  4. COUMADIN [Suspect]
     Indication: DEEP VEIN THROMBOSIS
     Route: 065
  5. COUMADIN [Suspect]
     Indication: DEEP VEIN THROMBOSIS
     Route: 065

REACTIONS (7)
  - Pulmonary embolism [Recovered/Resolved]
  - Deep vein thrombosis [Recovered/Resolved]
  - Fall [Recovered/Resolved]
  - Upper limb fracture [Recovered/Resolved]
  - Dizziness [Recovered/Resolved]
  - Loss of libido [Not Recovered/Not Resolved]
  - Erectile dysfunction [Not Recovered/Not Resolved]
